FAERS Safety Report 9578463 (Version 1)
Quarter: 2013Q4

REPORT INFORMATION
  Report Type: Spontaneous
  Country: US (occurrence: US)
  Receive Date: 20131001
  Receipt Date: 20131001
  Transmission Date: 20140711
  Serious: No
  Sender: FDA-Public Use
  Company Number: US-AMGEN-USASP2013012846

PATIENT
  Age: 50 Year
  Sex: Male
  Weight: 111.11 kg

DRUGS (7)
  1. ENBREL [Suspect]
     Indication: PSORIASIS
     Dosage: 50 MG, 2 TIMES/WK
     Route: 058
  2. ENBREL [Suspect]
     Indication: PSORIATIC ARTHROPATHY
  3. CELEXA                             /00582602/ [Concomitant]
     Dosage: 10 MG, UNK
  4. ROPINIROLE [Concomitant]
     Dosage: 1 MG, UNK
  5. TEMAZEPAM [Concomitant]
     Dosage: 15 MG, UNK
  6. KRILL OMEGA RED OIL [Concomitant]
     Dosage: 1000 MG, UNK
  7. MULTIVITAMINS, PLAIN [Concomitant]
     Dosage: UNK

REACTIONS (3)
  - Injection site erythema [Recovered/Resolved]
  - Injection site swelling [Recovered/Resolved]
  - Injection site pruritus [Recovered/Resolved]
